FAERS Safety Report 5168203-9 (Version None)
Quarter: 2006Q4

REPORT INFORMATION
  Report Type: 
  Country: None (occurrence: None)
  Receive Date: 20061208
  Receipt Date: 20061201
  Transmission Date: 20070319
  Serious: Yes (Hospitalization)
  Sender: FDA-Public Use
  Company Number: 2006UW27099

PATIENT
  Age: 74 Year
  Sex: Male

DRUGS (2)
  1. ZOLADEX [Suspect]
     Indication: PROSTATE CANCER
     Route: 058
     Dates: start: 20061122
  2. DIAZEPAM [Concomitant]
     Indication: INSOMNIA
     Route: 048

REACTIONS (7)
  - ABDOMINAL DISTENSION [None]
  - ASTHENIA [None]
  - CHILLS [None]
  - DRY MOUTH [None]
  - HYPERHIDROSIS [None]
  - OEDEMA PERIPHERAL [None]
  - PYREXIA [None]
